FAERS Safety Report 21800980 (Version 2)
Quarter: 2023Q1

REPORT INFORMATION
  Report Type: Spontaneous
  Country: AU (occurrence: AU)
  Receive Date: 20221230
  Receipt Date: 20230105
  Transmission Date: 20230418
  Serious: Yes (Life-Threatening, Other)
  Sender: FDA-Public Use
  Company Number: AU-002147023-NVSC2022AU300982

PATIENT
  Sex: Female

DRUGS (6)
  1. MYCOPHENOLATE MOFETIL [Suspect]
     Active Substance: MYCOPHENOLATE MOFETIL
     Indication: Acute graft versus host disease
     Dosage: UNK
     Route: 065
  2. MYCOPHENOLATE MOFETIL [Suspect]
     Active Substance: MYCOPHENOLATE MOFETIL
     Indication: Graft versus host disease in gastrointestinal tract
  3. METHYLPREDNISOLONE [Suspect]
     Active Substance: METHYLPREDNISOLONE
     Indication: Acute graft versus host disease
     Dosage: UNK
     Route: 065
  4. POSACONAZOLE [Concomitant]
     Active Substance: POSACONAZOLE
     Indication: Product used for unknown indication
     Dosage: 300 MG
     Route: 065
  5. POSACONAZOLE [Concomitant]
     Active Substance: POSACONAZOLE
     Dosage: 300 MG
     Route: 065
  6. POSACONAZOLE [Concomitant]
     Active Substance: POSACONAZOLE
     Dosage: 300 MG, QD
     Route: 065

REACTIONS (7)
  - Graft versus host disease in gastrointestinal tract [Unknown]
  - Diarrhoea [Unknown]
  - Acute graft versus host disease in skin [Unknown]
  - Acute graft versus host disease in liver [Unknown]
  - Haemoglobin decreased [Unknown]
  - Product use in unapproved indication [Unknown]
  - Therapy non-responder [Unknown]
